FAERS Safety Report 15271055 (Version 1)
Quarter: 2018Q3

REPORT INFORMATION
  Report Type: Report from Study
  Country: US (occurrence: US)
  Receive Date: 20180813
  Receipt Date: 20180813
  Transmission Date: 20181010
  Serious: Yes (Other)
  Sender: FDA-Public Use
  Company Number: US-AMGEN-USASL2018109782

PATIENT
  Age: 74 Year
  Sex: Female

DRUGS (1)
  1. ENBREL [Suspect]
     Active Substance: ETANERCEPT
     Indication: PSORIASIS
     Dosage: QWK
     Route: 065

REACTIONS (5)
  - Glaucoma [Unknown]
  - Diabetes mellitus [Unknown]
  - Cataract [Unknown]
  - Spinal cord compression [Unknown]
  - Tachycardia [Unknown]

NARRATIVE: CASE EVENT DATE: 201802
